FAERS Safety Report 20255710 (Version 2)
Quarter: 2022Q1

REPORT INFORMATION
  Report Type: Spontaneous
  Country: JP (occurrence: JP)
  Receive Date: 20211230
  Receipt Date: 20220125
  Transmission Date: 20220423
  Serious: Yes (Hospitalization)
  Sender: FDA-Public Use
  Company Number: JP-MYLANLABS-2021M1095806

PATIENT
  Age: 3 Decade
  Sex: Female
  Weight: 45 kg

DRUGS (4)
  1. TULOBUTEROL [Suspect]
     Active Substance: TULOBUTEROL
     Indication: Nasopharyngitis
     Dosage: 2 MILLIGRAM, QD
  2. CLARITHROMYCIN [Suspect]
     Active Substance: CLARITHROMYCIN
     Indication: Nasopharyngitis
     Dosage: 200 MILLIGRAM, BID
     Route: 048
  3. THEO-DUR [Suspect]
     Active Substance: THEOPHYLLINE ANHYDROUS
     Indication: Nasopharyngitis
     Dosage: 200 MILLIGRAM, BID
     Route: 048
  4. PROCATEROL HYDROCHLORIDE [Suspect]
     Active Substance: PROCATEROL HYDROCHLORIDE
     Indication: Nasopharyngitis

REACTIONS (3)
  - Condition aggravated [Recovering/Resolving]
  - Electrocardiogram QT prolonged [Recovering/Resolving]
  - Hypokalaemia [Recovering/Resolving]
